FAERS Safety Report 17891348 (Version 2)
Quarter: 2020Q2

REPORT INFORMATION
  Report Type: Spontaneous
  Country: US (occurrence: US)
  Receive Date: 20200612
  Receipt Date: 20200615
  Transmission Date: 20200714
  Serious: No
  Sender: FDA-Public Use
  Company Number: US-PFIZER INC-2020229248

PATIENT
  Age: 51 Year
  Sex: Male
  Weight: 95.25 kg

DRUGS (3)
  1. OXYCODONE AND ACETAMINOPHEN [Suspect]
     Active Substance: ACETAMINOPHEN\OXYCODONE HYDROCHLORIDE
     Indication: PAIN
     Dosage: 1-1-5 HOURS
  2. OXYCODONE AND ACETAMINOPHEN [Suspect]
     Active Substance: ACETAMINOPHEN\OXYCODONE HYDROCHLORIDE
     Dosage: UNK, AS NEEDED [TAKE ONE TO TWO TABLETS BY MOUTH EVERY 4-6 HOURS AS NEEDED]
     Route: 048
  3. CELEBREX [Suspect]
     Active Substance: CELECOXIB
     Indication: PAIN
     Dosage: 200 MG, (1 CAPSULE) EVERY DAY AS NEEDED
     Route: 048
     Dates: start: 20200610

REACTIONS (3)
  - Therapeutic response shortened [Unknown]
  - Drug ineffective [Unknown]
  - Intentional product misuse [Unknown]

NARRATIVE: CASE EVENT DATE: 202006
